FAERS Safety Report 24878165 (Version 1)
Quarter: 2025Q1

REPORT INFORMATION
  Report Type: Spontaneous
  Country: US (occurrence: None)
  Receive Date: 20250122
  Receipt Date: 20250122
  Transmission Date: 20250409
  Serious: Yes (Other)
  Sender: FDA-CTU
  Company Number: None

PATIENT
  Age: 92 Year
  Sex: Female
  Weight: 65.4 kg

DRUGS (6)
  1. AMOXICILLIN\CLAVULANIC ACID [Suspect]
     Active Substance: AMOXICILLIN\CLAVULANIC ACID
     Indication: Ear, nose and throat infection
     Dosage: FREQUENCY : TWICE A DAY;?
     Route: 048
     Dates: start: 20250117, end: 20250121
  2. ASPIRIN [Concomitant]
     Active Substance: ASPIRIN
     Dates: start: 20231213
  3. INSULIN DEGLUDEC [Concomitant]
     Active Substance: INSULIN DEGLUDEC
     Dates: start: 20240410
  4. latanoprost ophth [Concomitant]
     Dates: start: 20241223
  5. OMEPRAZOLE [Concomitant]
     Active Substance: OMEPRAZOLE
     Dates: start: 20240112
  6. TORSEMIDE [Concomitant]
     Active Substance: TORSEMIDE
     Dates: start: 20240416

REACTIONS (2)
  - Chromaturia [None]
  - Hepatic enzyme increased [None]

NARRATIVE: CASE EVENT DATE: 20250121
